FAERS Safety Report 7351410-4 (Version None)
Quarter: 2011Q1

REPORT INFORMATION
  Report Type: 
  Country: None (occurrence: None)
  Receive Date: 20110314
  Receipt Date: 20110310
  Transmission Date: 20110831
  Serious: Yes (Other)
  Sender: FDA-Public Use
  Company Number: ZA-B.I. PHARMACEUTICALS,INC./RIDGEFIELD-2011-ZA-00021ZA

PATIENT
  Age: 62 Year
  Sex: Female

DRUGS (2)
  1. PRITOR 40 MG [Suspect]
     Route: 048
  2. CELEBREX [Concomitant]
     Dosage: AS NEEDED
     Route: 048

REACTIONS (2)
  - ANAPHYLACTIC SHOCK [None]
  - HYPERSENSITIVITY [None]
